FAERS Safety Report 9809802 (Version 2)
Quarter: 2015Q4

REPORT INFORMATION
  Report Type: Spontaneous
  Country: US (occurrence: US)
  Receive Date: 20140110
  Receipt Date: 20151228
  Transmission Date: 20160305
  Serious: Yes (Death)
  Sender: FDA-Public Use
  Company Number: US-SANOFI-AVENTIS-2013SA067249

PATIENT
  Age: 68 Year
  Sex: Female

DRUGS (2)
  1. PLAVIX [Suspect]
     Active Substance: CLOPIDOGREL BISULFATE
     Indication: TRANSIENT ISCHAEMIC ATTACK
     Route: 048
     Dates: start: 20120210, end: 20120326
  2. ASPIRIN. [Concomitant]
     Active Substance: ASPIRIN
     Route: 048

REACTIONS (2)
  - Cerebrovascular accident [Fatal]
  - Cerebral haemorrhage [Fatal]

NARRATIVE: CASE EVENT DATE: 201203
